FAERS Safety Report 8086745-3 (Version None)
Quarter: 2012Q1

REPORT INFORMATION
  Report Type: 
  Country: None (occurrence: None)
  Receive Date: 20120128
  Receipt Date: 20110613
  Transmission Date: 20120608
  Serious: No
  Sender: FDA-Public Use
  Company Number: US-ABBOTT-11P-163-0731951-00

PATIENT
  Age: 49 Year
  Sex: Female

DRUGS (10)
  1. DIOVAN [Concomitant]
     Indication: FLUID RETENTION
  2. CRESTOR [Concomitant]
     Indication: BLOOD CHOLESTEROL INCREASED
  3. LISINOPRIL [Concomitant]
     Indication: HYPERTENSION
  4. HUMIRA [Suspect]
     Indication: PSORIATIC ARTHROPATHY
  5. FLUOXETINE [Concomitant]
     Indication: STRESS
     Dosage: 3 CAPSULES BY MOUTH DAILY
     Route: 048
  6. OMEPRAZOLE [Concomitant]
     Indication: DYSPEPSIA
  7. HYDROCHLOROTHIAZIDE [Concomitant]
     Indication: FLUID RETENTION
  8. FLUOXETINE [Concomitant]
     Indication: DEPRESSION
  9. LOVASTATIN [Concomitant]
     Indication: BLOOD CHOLESTEROL INCREASED
  10. HYDROCODONE BITARTRATE [Concomitant]
     Indication: PAIN
     Dosage: DAILY THREE TIMES A DAY AS NEEDED

REACTIONS (1)
  - INJECTION SITE PAIN [None]
